FAERS Safety Report 5126236-2 (Version None)
Quarter: 2006Q3

REPORT INFORMATION
  Report Type: 
  Country: None (occurrence: None)
  Receive Date: 20060824
  Receipt Date: 20060620
  Transmission Date: 20061208
  Serious: Yes (Life-Threatening, Hospitalization)
  Sender: FDA-Public Use
  Company Number: WAES 0606USA03520

PATIENT
  Age: 31 Year
  Sex: Male
  Weight: 110.2241 kg

DRUGS (2)
  1. VYTORIN [Suspect]
     Indication: BLOOD CHOLESTEROL INCREASED
     Dosage: 10-20 MG/DAILY/PO
     Route: 048
     Dates: start: 20051221, end: 20060505
  2. LOTENSIN [Concomitant]

REACTIONS (1)
  - RHABDOMYOLYSIS [None]
